FAERS Safety Report 13883815 (Version 1)
Quarter: 2017Q3

REPORT INFORMATION
  Report Type: Spontaneous
  Country: BR (occurrence: BR)
  Receive Date: 20170820
  Receipt Date: 20170820
  Transmission Date: 20171127
  Serious: Yes (Other)
  Sender: FDA-Public Use
  Company Number: BR-009507513-1708BRA005505

PATIENT
  Age: 4 Month
  Sex: Male

DRUGS (2)
  1. BETAMETHASONE. [Suspect]
     Active Substance: BETAMETHASONE
  2. NEOMYCIN SULFATE. [Suspect]
     Active Substance: NEOMYCIN SULFATE

REACTIONS (7)
  - Immunosuppression [Unknown]
  - Acarodermatitis [Unknown]
  - Sepsis [Unknown]
  - Incorrect dose administered [Unknown]
  - Infection [Unknown]
  - Product use in unapproved indication [Unknown]
  - Seborrhoeic dermatitis [Unknown]
